FAERS Safety Report 6937697 (Version 1)
Quarter: 2020Q3

REPORT INFORMATION
  Report Type: Spontaneous
  Country: BR (occurrence: BR)
  Receive Date: 20090313
  Receipt Date: 20090313
  Transmission Date: 20201105
  Serious: Yes (Hospitalization, Other)
  Sender: FDA-Public Use
  Company Number: BR-AVENTIS-200910880EU

PATIENT
  Age: 40 Year
  Sex: Female
  Weight: 102 kg

DRUGS (11)
  1. LORAZEPAM. [Suspect]
     Active Substance: LORAZEPAM
     Indication: SEIZURE
     Dosage: DOSE: UNK
  2. LOSARTAN POTASSIUM. [Concomitant]
     Active Substance: LOSARTAN POTASSIUM
     Dosage: DOSE: 1 TABLET
     Route: 048
  3. LASIX [Suspect]
     Active Substance: FUROSEMIDE
     Dosage: DOSE: UNK
     Route: 042
     Dates: start: 20081224, end: 20081227
  4. PHENOBARBITAL SODIUM. [Suspect]
     Active Substance: PHENOBARBITAL SODIUM
     Indication: SEIZURE
     Dosage: DOSE: UNK
     Route: 048
     Dates: start: 2005
  5. HYDROCHLOROTHIAZIDE. [Concomitant]
     Active Substance: HYDROCHLOROTHIAZIDE
     Dosage: DOSE: UNK
  6. CLOBAZAM /ELUM [Concomitant]
  7. PHENOBARBITAL SODIUM. [Suspect]
     Active Substance: PHENOBARBITAL SODIUM
     Route: 048
  8. CINNARIZINE [Concomitant]
     Active Substance: CINNARIZINE
     Dosage: DOSE: UNK
  9. LOSARTAN POTASSIUM. [Concomitant]
     Active Substance: LOSARTAN POTASSIUM
     Dosage: DOSE: 2 TABLETS
     Route: 048
  10. HYDERGINE                          /00028501/ [Concomitant]
     Dosage: DOSE: UNK
  11. FRONTAL [Suspect]
     Active Substance: ALPRAZOLAM
     Indication: SEIZURE
     Dosage: DOSE: UNK

REACTIONS (15)
  - Dysuria [Recovered/Resolved]
  - Pain in extremity [Not Recovered/Not Resolved]
  - Somnolence [Not Recovered/Not Resolved]
  - Weight increased [Not Recovered/Not Resolved]
  - Visual impairment [Not Recovered/Not Resolved]
  - Renal disorder [Recovered/Resolved]
  - Hypersensitivity [Not Recovered/Not Resolved]
  - Brain scan abnormal [Not Recovered/Not Resolved]
  - Respiratory arrest [Unknown]
  - Constipation [Not Recovered/Not Resolved]
  - Feeling abnormal [Not Recovered/Not Resolved]
  - Nausea [Not Recovered/Not Resolved]
  - Muscle spasms [Not Recovered/Not Resolved]
  - Hypertension [Not Recovered/Not Resolved]
  - Eating disorder [Not Recovered/Not Resolved]

NARRATIVE: CASE EVENT DATE: 20081224
